FAERS Safety Report 7099312-5 (Version None)
Quarter: 2010Q4

REPORT INFORMATION
  Report Type: 
  Country: None (occurrence: None)
  Receive Date: 20101112
  Receipt Date: 20080716
  Transmission Date: 20110411
  Serious: Yes (Death)
  Sender: FDA-Public Use
  Company Number: US-KINGPHARMUSA00001-K200800838

PATIENT
  Age: 17 Year
  Sex: Male

DRUGS (1)
  1. AVINZA [Suspect]
     Dosage: 600-720 MG OVER 10 HOURS
     Dates: start: 20080316

REACTIONS (1)
  - ACCIDENTAL OVERDOSE [None]
